FAERS Safety Report 6192173-8 (Version None)
Quarter: 2009Q2

REPORT INFORMATION
  Report Type: 
  Country: None (occurrence: None)
  Receive Date: 20090515
  Receipt Date: 20090514
  Transmission Date: 20091009
  Serious: Yes (Death, Hospitalization)
  Sender: FDA-Public Use
  Company Number: PHHY2008JP33220

PATIENT
  Sex: Female

DRUGS (7)
  1. GLEEVEC [Suspect]
     Indication: GASTROINTESTINAL STROMAL TUMOUR
     Dosage: 400 MG, QD
     Route: 048
     Dates: start: 20030725, end: 20040201
  2. GLEEVEC [Suspect]
     Dosage: 400 MG/DAY
     Route: 048
     Dates: start: 20040315, end: 20040411
  3. GLEEVEC [Suspect]
     Dosage: 300 MG/DAY
     Route: 048
     Dates: start: 20040426, end: 20040704
  4. GLEEVEC [Suspect]
     Dosage: 300 MG/DAY
     Route: 048
     Dates: start: 20040726, end: 20040930
  5. GLEEVEC [Suspect]
     Dosage: 300 MG/DAY
     Route: 048
     Dates: start: 20041025, end: 20041223
  6. GLEEVEC [Suspect]
     Dosage: 300MG/DAY
     Route: 048
     Dates: start: 20050121, end: 20050603
  7. GLEEVEC [Suspect]
     Dosage: 300MG/DAY
     Route: 048
     Dates: start: 20050701, end: 20080109

REACTIONS (2)
  - ACUTE MYELOID LEUKAEMIA [None]
  - WHITE BLOOD CELL COUNT INCREASED [None]
